FAERS Safety Report 13311654 (Version 1)
Quarter: 2017Q1

REPORT INFORMATION
  Report Type: Spontaneous
  Country: US (occurrence: US)
  Receive Date: 20170308
  Receipt Date: 20170308
  Transmission Date: 20170428
  Serious: No
  Sender: FDA-Public Use
  Company Number: None

PATIENT
  Age: 16 Year
  Sex: Female

DRUGS (3)
  1. SILDENAFIL TAB 20MG [Suspect]
     Active Substance: SILDENAFIL
     Indication: GASTROOESOPHAGEAL REFLUX DISEASE
  2. SILDENAFIL TAB 20MG [Suspect]
     Active Substance: SILDENAFIL
     Indication: HYPOPLASTIC LEFT HEART SYNDROME
  3. SILDENAFIL TAB 20MG [Suspect]
     Active Substance: SILDENAFIL
     Indication: PORTAL HYPERTENSION

REACTIONS (1)
  - Drug dose omission [None]

NARRATIVE: CASE EVENT DATE: 20170308
